FAERS Safety Report 7476030-2 (Version None)
Quarter: 2011Q2

REPORT INFORMATION
  Report Type: 
  Country: None (occurrence: None)
  Receive Date: 20110512
  Receipt Date: 20110503
  Transmission Date: 20111010
  Serious: Yes (Other)
  Sender: FDA-Public Use
  Company Number: US-ASTRAZENECA-2010SE38088

PATIENT
  Age: 50 Year
  Sex: Male
  Weight: 98 kg

DRUGS (13)
  1. SEROQUEL [Suspect]
     Route: 048
     Dates: start: 20090401
  2. XANAX [Concomitant]
     Indication: ANXIETY
  3. SEROQUEL [Suspect]
     Indication: SLEEP DISORDER
     Route: 048
  4. SEROQUEL [Suspect]
     Route: 048
  5. SEROQUEL [Suspect]
     Route: 048
  6. SEROQUEL [Suspect]
     Route: 048
  7. SEROQUEL [Suspect]
     Route: 048
     Dates: start: 20090401
  8. SEROQUEL [Suspect]
     Route: 048
  9. SEROQUEL [Suspect]
     Indication: DEPRESSION
     Route: 048
  10. SEROQUEL [Suspect]
     Route: 048
  11. SEROQUEL [Suspect]
     Route: 048
  12. SEROQUEL [Suspect]
     Indication: ANXIETY
     Route: 048
  13. SEROQUEL [Suspect]
     Route: 048
     Dates: start: 20090401

REACTIONS (15)
  - ASTHENIA [None]
  - INSOMNIA [None]
  - GAIT DISTURBANCE [None]
  - LOSS OF CONSCIOUSNESS [None]
  - TRIGEMINAL NERVE DISORDER [None]
  - DIZZINESS [None]
  - DYSARTHRIA [None]
  - DISABILITY [None]
  - OFF LABEL USE [None]
  - MEMORY IMPAIRMENT [None]
  - ADVERSE EVENT [None]
  - DRUG DOSE OMISSION [None]
  - MENINGITIS [None]
  - CONVULSION [None]
  - PERONEAL NERVE PALSY [None]
